FAERS Safety Report 17377159 (Version 1)
Quarter: 2020Q1

REPORT INFORMATION
  Report Type: Spontaneous
  Country: JP (occurrence: JP)
  Receive Date: 20200206
  Receipt Date: 20200206
  Transmission Date: 20200409
  Serious: Yes (Hospitalization)
  Sender: FDA-Public Use
  Company Number: JP-ELI_LILLY_AND_COMPANY-JP202002000063AA

PATIENT
  Sex: Female

DRUGS (1)
  1. OLUMIANT [Suspect]
     Active Substance: BARICITINIB
     Indication: PRODUCT USED FOR UNKNOWN INDICATION
     Dosage: UNK
     Route: 048
     Dates: start: 201911, end: 20200130

REACTIONS (4)
  - Mobility decreased [Recovered/Resolved]
  - Loss of control of legs [Unknown]
  - Cough [Unknown]
  - Stomatitis [Unknown]

NARRATIVE: CASE EVENT DATE: 201912
